FAERS Safety Report 20424474 (Version 1)
Quarter: 2022Q1

REPORT INFORMATION
  Report Type: Report from Study
  Country: IT (occurrence: IT)
  Receive Date: 20220203
  Receipt Date: 20220203
  Transmission Date: 20220424
  Serious: Yes (Disabling)
  Sender: FDA-Public Use
  Company Number: IT-EXELIXIS-CABO-21045402

PATIENT
  Age: 53 Year
  Sex: Female
  Weight: 40 kg

DRUGS (12)
  1. CABOMETYX [Suspect]
     Active Substance: CABOZANTINIB S-MALATE
     Indication: Non-small cell lung cancer
     Dosage: 60 MG, QD
     Route: 048
     Dates: start: 20210924, end: 20211119
  2. CABOMETYX [Suspect]
     Active Substance: CABOZANTINIB S-MALATE
     Dosage: 40 MG, QD
     Route: 048
     Dates: start: 20211130, end: 20211202
  3. METHYLPREDNISOLONE [Concomitant]
     Active Substance: METHYLPREDNISOLONE
     Indication: Asthenia
     Dosage: UNK
  4. PANTOPRAZOLE [Concomitant]
     Active Substance: PANTOPRAZOLE
     Indication: Gastric perforation
     Dosage: UNK
  5. PANTOPRAZOLE [Concomitant]
     Active Substance: PANTOPRAZOLE
     Indication: Gastritis prophylaxis
  6. OLMESARTAN/AMLODIPINE CLONMEL [Concomitant]
     Indication: Hypertension
     Dosage: UNK
  7. AMLODIPINE [Concomitant]
     Active Substance: AMLODIPINE BESYLATE
     Indication: Hypertension
  8. BISOPROLOL [Concomitant]
     Active Substance: BISOPROLOL
     Indication: Hypertension
  9. LEVOTHYROXINE SODIUM [Concomitant]
     Active Substance: LEVOTHYROXINE SODIUM
     Indication: Hypothyroidism
  10. BECLOMETHASONE [Concomitant]
     Active Substance: BECLOMETHASONE
     Indication: Asthma
  11. SALMETEROL [Concomitant]
     Active Substance: SALMETEROL
     Indication: Asthma
  12. OMEGA 3 [Concomitant]
     Active Substance: CAPSAICIN
     Indication: Hypertriglyceridaemia

REACTIONS (3)
  - Diarrhoea [Recovered/Resolved]
  - Diastolic dysfunction [Not Recovered/Not Resolved]
  - Off label use [Unknown]

NARRATIVE: CASE EVENT DATE: 20211019
